FAERS Safety Report 20115139 (Version 1)
Quarter: 2021Q4

REPORT INFORMATION
  Report Type: Spontaneous
  Country: None (occurrence: GB)
  Receive Date: 20211125
  Receipt Date: 20211125
  Transmission Date: 20220303
  Serious: Yes (Other)
  Sender: FDA-Public Use
  Company Number: GB-Ascend Therapeutics US, LLC-2122345

PATIENT
  Age: 47 Year
  Sex: Female
  Weight: 67.12 kg

DRUGS (5)
  1. ESTROGEL [Suspect]
     Active Substance: ESTRADIOL
     Indication: Menopause
     Route: 065
     Dates: start: 20210816
  2. ESTROGEL [Suspect]
     Active Substance: ESTRADIOL
  3. ESTRADIOL [Suspect]
     Active Substance: ESTRADIOL
     Route: 065
     Dates: start: 20210816
  4. MODAFINIL [Concomitant]
     Active Substance: MODAFINIL
     Route: 065
  5. UTROGESTAN [Concomitant]
     Active Substance: PROGESTERONE
     Route: 065

REACTIONS (6)
  - Menopausal symptoms [Not Recovered/Not Resolved]
  - Sleep disorder [Not Recovered/Not Resolved]
  - Palpitations [Not Recovered/Not Resolved]
  - Mood altered [Not Recovered/Not Resolved]
  - Pruritus [Not Recovered/Not Resolved]
  - Drug ineffective [Unknown]

NARRATIVE: CASE EVENT DATE: 20210820
